FAERS Safety Report 19255146 (Version 6)
Quarter: 2024Q3

REPORT INFORMATION
  Report Type: Report from Study
  Country: US (occurrence: US)
  Receive Date: 20210513
  Receipt Date: 20240717
  Transmission Date: 20241017
  Serious: Yes (Other)
  Sender: TAKEDA
  Company Number: US-TAKEDA-US202004124

PATIENT
  Sex: Female

DRUGS (3)
  1. HUMAN IMMUNOGLOBULIN G [Suspect]
     Active Substance: HUMAN IMMUNOGLOBULIN G
     Indication: Immunodeficiency common variable
     Dosage: UNK
     Route: 042
  2. HUMAN IMMUNOGLOBULIN G [Suspect]
     Active Substance: HUMAN IMMUNOGLOBULIN G
     Indication: Primary immunodeficiency syndrome
  3. PREDNISONE [Suspect]
     Active Substance: PREDNISONE
     Indication: Product used for unknown indication
     Dosage: UNK
     Route: 065

REACTIONS (14)
  - Carpal tunnel decompression [Unknown]
  - Hip arthroplasty [Unknown]
  - General physical health deterioration [Unknown]
  - Attention deficit hyperactivity disorder [Unknown]
  - Spinal meningeal cyst [Unknown]
  - Spinal disorder [Unknown]
  - Depression [Unknown]
  - Post procedural complication [Unknown]
  - Abdominal discomfort [Unknown]
  - Pain [Unknown]
  - Insomnia [Unknown]
  - Arthralgia [Unknown]
  - Headache [Unknown]
  - Migraine [Unknown]
